FAERS Safety Report 5199736-7 (Version None)
Quarter: 2007Q1

REPORT INFORMATION
  Report Type: 
  Country: None (occurrence: None)
  Receive Date: 20070105
  Receipt Date: 20061228
  Transmission Date: 20070707
  Serious: Yes (Other)
  Sender: FDA-Public Use
  Company Number: 2006UW18775

PATIENT
  Age: 52 Year
  Sex: Female
  Weight: 95.5 kg

DRUGS (3)
  1. SEROQUEL [Suspect]
     Indication: BIPOLAR II DISORDER
     Route: 048
     Dates: start: 20060109, end: 20060919
  2. KLONOPIN [Suspect]
     Indication: ANXIETY
     Route: 048
     Dates: start: 20051019, end: 20060919
  3. LYRICA [Concomitant]
     Indication: NEURALGIA
     Route: 048
     Dates: start: 20051116

REACTIONS (4)
  - INAPPROPRIATE SCHEDULE OF DRUG ADMINISTRATION [None]
  - OVERDOSE [None]
  - ROAD TRAFFIC ACCIDENT [None]
  - SOMNOLENCE [None]
